FAERS Safety Report 4819476-0 (Version None)
Quarter: 2005Q4

REPORT INFORMATION
  Report Type: 
  Country: None (occurrence: None)
  Receive Date: 20051031
  Receipt Date: 20050715
  Transmission Date: 20060501
  Serious: No
  Sender: FDA-Public Use
  Company Number: 2005PV000395

PATIENT
  Age: 65 Year
  Sex: Female
  Weight: 80.7403 kg

DRUGS (8)
  1. SYMLIN [Suspect]
     Indication: DIABETES MELLITUS
     Dosage: 60 MCG; TID; SC
     Route: 058
     Dates: start: 20050714
  2. HUMULIN 70/30 [Concomitant]
  3. GLUCOPHAGE [Concomitant]
  4. REGULAR INSULIN [Concomitant]
  5. VYTORIN [Concomitant]
  6. VASOTEC [Concomitant]
  7. LOPRESSOR [Concomitant]
  8. DIGOXIN [Concomitant]

REACTIONS (1)
  - DRUG INEFFECTIVE [None]
